FAERS Safety Report 16778084 (Version 2)
Quarter: 2019Q4

REPORT INFORMATION
  Report Type: Spontaneous
  Country: US (occurrence: US)
  Receive Date: 20190905
  Receipt Date: 20191025
  Transmission Date: 20200122
  Serious: Yes (Other)
  Sender: FDA-Public Use
  Company Number: US-TAKEDA-2019TUS051025

PATIENT

DRUGS (18)
  1. TYLENOL [Concomitant]
     Active Substance: ACETAMINOPHEN
     Dosage: UNK
     Dates: start: 2019
  2. ZANTAC [Concomitant]
     Active Substance: RANITIDINE HYDROCHLORIDE
     Dosage: UNK
  3. PREVACID [Suspect]
     Active Substance: LANSOPRAZOLE
     Indication: GASTROOESOPHAGEAL REFLUX DISEASE
     Dosage: 30 MILLIGRAM, QD
     Route: 048
     Dates: start: 200701, end: 200902
  4. AMBIEN [Concomitant]
     Active Substance: ZOLPIDEM TARTRATE
     Indication: SLEEP DISORDER
     Dosage: UNK
     Dates: start: 200701, end: 200704
  5. CLOPIDOGREL [Concomitant]
     Active Substance: CLOPIDOGREL BISULFATE
     Indication: ANTICOAGULANT THERAPY
     Dosage: UNK
     Dates: start: 200701, end: 201608
  6. CITALOPRAM [Concomitant]
     Active Substance: CITALOPRAM HYDROBROMIDE
     Indication: MOOD ALTERED
     Dosage: UNK
     Dates: start: 200701, end: 200903
  7. FUROSEMIDE. [Concomitant]
     Active Substance: FUROSEMIDE
     Indication: DIURETIC THERAPY
     Dosage: UNK
     Dates: start: 200701, end: 201608
  8. ATENOLOL. [Concomitant]
     Active Substance: ATENOLOL
     Dosage: UNK
     Dates: start: 200701, end: 201608
  9. CYCLOBENZAPRINE. [Concomitant]
     Active Substance: CYCLOBENZAPRINE
     Dosage: UNK
     Dates: start: 200701, end: 201608
  10. OMEPRAZOLE. [Suspect]
     Active Substance: OMEPRAZOLE
     Indication: GASTROOESOPHAGEAL REFLUX DISEASE
     Dosage: 20 MILLIGRAM, QD
     Route: 048
     Dates: start: 200702, end: 200710
  11. LIPITOR [Concomitant]
     Active Substance: ATORVASTATIN CALCIUM
     Indication: BLOOD CHOLESTEROL
     Dosage: UNK
     Dates: start: 200701, end: 201205
  12. METFORMIN [Concomitant]
     Active Substance: METFORMIN HYDROCHLORIDE
     Indication: DIABETES MELLITUS
     Dosage: UNK
     Dates: start: 200701, end: 201210
  13. JANTOVEN [Concomitant]
     Active Substance: WARFARIN SODIUM
     Indication: ANTICOAGULANT THERAPY
     Dosage: UNK
     Dates: start: 200701, end: 201206
  14. LORAZEPAM. [Concomitant]
     Active Substance: LORAZEPAM
     Indication: ANXIETY
     Dosage: UNK
     Dates: start: 199911, end: 201210
  15. ROLAIDS                            /00069401/ [Concomitant]
     Active Substance: DIHYDROXYALUMINUM SODIUM CARBONATE
     Dosage: UNK
     Dates: start: 2005
  16. GEMFIBROZIL. [Concomitant]
     Active Substance: GEMFIBROZIL
     Indication: BLOOD CHOLESTEROL
     Dosage: UNK
     Dates: start: 200701, end: 201211
  17. TUMS                               /00193601/ [Concomitant]
     Active Substance: CALCIUM CARBONATE\MAGNESIUM CARBONATE\MAGNESIUM TRISILICATE
     Dosage: UNK
     Dates: start: 2005
  18. NEXIUM [Suspect]
     Active Substance: ESOMEPRAZOLE MAGNESIUM
     Indication: GASTROOESOPHAGEAL REFLUX DISEASE
     Dosage: 40 MILLIGRAM, QD
     Route: 048
     Dates: start: 200902, end: 201610

REACTIONS (2)
  - Chronic kidney disease [Unknown]
  - Acute kidney injury [Unknown]

NARRATIVE: CASE EVENT DATE: 201301
